FAERS Safety Report 18587259 (Version 1)
Quarter: 2020Q4

REPORT INFORMATION
  Report Type: Report from Study
  Country: KR (occurrence: KR)
  Receive Date: 20201207
  Receipt Date: 20201207
  Transmission Date: 20210114
  Serious: Yes (Hospitalization)
  Sender: FDA-Public Use
  Company Number: KR-DSJP-DSJ-2020-137376AA

PATIENT
  Age: 45 Year
  Sex: Male
  Weight: 80 kg

DRUGS (4)
  1. OLMESARTAN AMLODIPINE HYDROCHLOROTHIAZIDE [Suspect]
     Active Substance: AMLODIPINE\HYDROCHLOROTHIAZIDE\OLMESARTAN
     Indication: ESSENTIAL HYPERTENSION
     Dosage: 1 DF, QD
     Route: 048
     Dates: start: 20181114
  2. ESOMEZOL                           /01479304/ [Concomitant]
     Active Substance: ESOMEPRAZOLE STRONTIUM
     Indication: EPIDURAL HAEMORRHAGE
     Dosage: 1 DF, BID
     Route: 048
     Dates: start: 20171129
  3. NEUROMED                           /00943401/ [Concomitant]
     Indication: EPIDURAL HAEMORRHAGE
     Dosage: 1 DF, 2
     Route: 048
     Dates: start: 20180516
  4. DILATREND [Concomitant]
     Active Substance: CARVEDILOL
     Indication: EPIDURAL HAEMORRHAGE
     Dosage: 1 DF, BID
     Route: 048
     Dates: start: 20170222

REACTIONS (1)
  - Intervertebral disc protrusion [Unknown]

NARRATIVE: CASE EVENT DATE: 20190306
